FAERS Safety Report 10540317 (Version 4)
Quarter: 2016Q1

REPORT INFORMATION
  Report Type: Spontaneous
  Country: US (occurrence: US)
  Receive Date: 20141024
  Receipt Date: 20160202
  Transmission Date: 20160525
  Serious: Yes (Disabling, Other)
  Sender: FDA-Public Use
  Company Number: US-PFIZER INC-2014293870

PATIENT
  Sex: Female

DRUGS (1)
  1. LYRICA [Suspect]
     Active Substance: PREGABALIN
     Dosage: UNK

REACTIONS (6)
  - Back disorder [Unknown]
  - Polyp [Unknown]
  - Histoplasmosis [Unknown]
  - Ear infection [Unknown]
  - Burning sensation [Unknown]
  - Malaise [Unknown]
